FAERS Safety Report 11431772 (Version 15)
Quarter: 2016Q4

REPORT INFORMATION
  Report Type: Report from Study
  Country: US (occurrence: US)
  Receive Date: 20150828
  Receipt Date: 20161021
  Transmission Date: 20170206
  Serious: Yes (Hospitalization, Other)
  Sender: FDA-Public Use
  Company Number: US-SA-2015SA112829

PATIENT
  Age: 39 Year
  Sex: Female

DRUGS (5)
  1. BACTRIM [Concomitant]
     Active Substance: SULFAMETHOXAZOLE\TRIMETHOPRIM
     Indication: URINARY TRACT INFECTION
  2. HYDROCORTISONE. [Suspect]
     Active Substance: HYDROCORTISONE
     Route: 065
  3. PREDNISONE. [Concomitant]
     Active Substance: PREDNISONE
     Dosage: FOR 2 YEARS
  4. BACLOFEN. [Concomitant]
     Active Substance: BACLOFEN
  5. LEMTRADA [Suspect]
     Active Substance: ALEMTUZUMAB
     Indication: MULTIPLE SCLEROSIS
     Route: 041
     Dates: start: 20150720, end: 20150724

REACTIONS (60)
  - Fungal infection [Recovered/Resolved]
  - Osteopenia [Not Recovered/Not Resolved]
  - Arthritis [Not Recovered/Not Resolved]
  - Bone pain [Unknown]
  - Somnolence [Unknown]
  - Hypogonadism [Unknown]
  - Balance disorder [Recovering/Resolving]
  - Arthralgia [Unknown]
  - Odynophagia [Recovering/Resolving]
  - Poor venous access [Unknown]
  - Memory impairment [Not Recovered/Not Resolved]
  - Central venous catheterisation [Unknown]
  - Back pain [Not Recovered/Not Resolved]
  - Condition aggravated [Unknown]
  - Skin haemorrhage [Unknown]
  - Pain in extremity [Unknown]
  - Hyperhidrosis [Recovered/Resolved]
  - Fall [Recovered/Resolved]
  - Foot fracture [Recovered/Resolved]
  - Nausea [Recovered/Resolved]
  - Pyrexia [Recovered/Resolved]
  - Ovarian failure [Not Recovered/Not Resolved]
  - Headache [Unknown]
  - Oropharyngeal pain [Recovering/Resolving]
  - Headache [Recovered/Resolved]
  - Multiple sclerosis relapse [Not Recovered/Not Resolved]
  - Pyrexia [Not Recovered/Not Resolved]
  - Joint swelling [Unknown]
  - Arthropathy [Not Recovered/Not Resolved]
  - Chest pain [Not Recovered/Not Resolved]
  - Dry skin [Not Recovered/Not Resolved]
  - Skin exfoliation [Unknown]
  - Hypopituitarism [Not Recovered/Not Resolved]
  - Adrenal disorder [Not Recovered/Not Resolved]
  - Hypothyroidism [Not Recovered/Not Resolved]
  - Fatigue [Recovering/Resolving]
  - Adrenal insufficiency [Not Recovered/Not Resolved]
  - Compression fracture [Not Recovered/Not Resolved]
  - Spinal cord oedema [Not Recovered/Not Resolved]
  - Myelopathy [Not Recovered/Not Resolved]
  - Thyroid disorder [Not Recovered/Not Resolved]
  - CD4 lymphocytes decreased [Not Recovered/Not Resolved]
  - Pain [Not Recovered/Not Resolved]
  - Muscle spasticity [Unknown]
  - Blood growth hormone decreased [Not Recovered/Not Resolved]
  - Vomiting [Recovered/Resolved]
  - Pneumonia [Recovering/Resolving]
  - Eosinophilic granulomatosis with polyangiitis [Not Recovered/Not Resolved]
  - Erythema [Unknown]
  - Chills [Unknown]
  - Influenza [Recovered/Resolved]
  - Weight decreased [Unknown]
  - Tremor [Recovered/Resolved]
  - Muscle spasms [Not Recovered/Not Resolved]
  - Hypothalamo-pituitary disorder [Not Recovered/Not Resolved]
  - Amenorrhoea [Not Recovered/Not Resolved]
  - Blood prolactin increased [Not Recovered/Not Resolved]
  - Malaise [Unknown]
  - Fistula [Recovering/Resolving]
  - Hypoaesthesia [Unknown]

NARRATIVE: CASE EVENT DATE: 2015
